FAERS Safety Report 19685420 (Version 1)
Quarter: 2021Q3

REPORT INFORMATION
  Report Type: Spontaneous
  Country: CA (occurrence: CA)
  Receive Date: 20210811
  Receipt Date: 20210811
  Transmission Date: 20211014
  Serious: Yes (Hospitalization)
  Sender: FDA-Public Use
  Company Number: CA-TEVA-2021-CA-1939537

PATIENT
  Age: 85 Year
  Sex: Female

DRUGS (5)
  1. CANDESARTAN. [Concomitant]
     Active Substance: CANDESARTAN
     Route: 065
  2. METOPROLOL. [Suspect]
     Active Substance: METOPROLOL
     Route: 065
  3. AMLODIPINE [Concomitant]
     Active Substance: AMLODIPINE BESYLATE
     Route: 065
  4. FUROSEMIDE. [Suspect]
     Active Substance: FUROSEMIDE
     Route: 065
  5. ELIQUIS [Suspect]
     Active Substance: APIXABAN
     Route: 065

REACTIONS (8)
  - Haemorrhage intracranial [Unknown]
  - Drug ineffective [Unknown]
  - Intentional product misuse [Unknown]
  - Blood pressure decreased [Unknown]
  - Facial bones fracture [Unknown]
  - Blood pressure increased [Unknown]
  - Fall [Unknown]
  - Syncope [Unknown]
